FAERS Safety Report 9325629 (Version 2)
Quarter: 2013Q3

REPORT INFORMATION
  Report Type: Spontaneous
  Country: JP (occurrence: JP)
  Receive Date: 20130604
  Receipt Date: 20130808
  Transmission Date: 20140515
  Serious: Yes (Death)
  Sender: FDA-Public Use
  Company Number: JP-AMGEN-JPNSP2013038991

PATIENT
  Age: 79 Year
  Sex: Female
  Weight: 52 kg

DRUGS (4)
  1. VECTIBIX [Suspect]
     Indication: COLON CANCER
     Dosage: 200 MG, Q2WK
     Route: 041
     Dates: start: 20120717, end: 20130402
  2. ISOVORIN /00566702/ [Suspect]
     Indication: COLON CANCER
     Dosage: 200 MG, Q2WK
     Route: 041
     Dates: start: 20120717, end: 20130402
  3. 5-FU /00098801/ [Suspect]
     Indication: COLON CANCER
     Dosage: 2920 MG, Q2WK
     Route: 041
     Dates: start: 20120717, end: 20130402
  4. ELPLAT [Suspect]
     Indication: COLON CANCER
     Dosage: 90 MG, Q2WK
     Route: 041
     Dates: start: 20120717, end: 20130402

REACTIONS (1)
  - Interstitial lung disease [Fatal]
